FAERS Safety Report 23189091 (Version 2)
Quarter: 2024Q2

REPORT INFORMATION
  Report Type: Report from Study
  Country: DE (occurrence: DE)
  Receive Date: 20231115
  Receipt Date: 20240412
  Transmission Date: 20240716
  Serious: Yes (Hospitalization)
  Sender: FDA-Public Use
  Company Number: DE-ABBVIE-5491656

PATIENT
  Age: 85 Year
  Sex: Male

DRUGS (2)
  1. RINVOQ [Suspect]
     Active Substance: UPADACITINIB
     Indication: Rheumatoid arthritis
     Route: 048
     Dates: start: 202103
  2. METHOTREXATE [Concomitant]
     Active Substance: METHOTREXATE
     Indication: Product used for unknown indication
     Dosage: FORM STRENGTH: 10 MILLIGRAM, STARTED BEFORE 26 JUN 2013 AND STOPPED BETWEEN 17 FEB 2022 AND 11 AU...
     Route: 065

REACTIONS (1)
  - Ulnar tunnel syndrome [Recovered/Resolved]

NARRATIVE: CASE EVENT DATE: 20230912
